FAERS Safety Report 17070345 (Version 1)
Quarter: 2019Q4

REPORT INFORMATION
  Report Type: Spontaneous
  Country: DK (occurrence: DK)
  Receive Date: 20191125
  Receipt Date: 20191125
  Transmission Date: 20200122
  Serious: Yes (Life-Threatening, Hospitalization, Other)
  Sender: FDA-Public Use
  Company Number: DK-SA-2019SA321235

PATIENT
  Age: 37 Year
  Sex: Male

DRUGS (4)
  1. LEMTRADA [Suspect]
     Active Substance: ALEMTUZUMAB
     Dosage: UNK UNK, QD
     Route: 041
     Dates: start: 2014, end: 2014
  2. LEMTRADA [Suspect]
     Active Substance: ALEMTUZUMAB
     Dosage: UNK UNK, QD
     Route: 041
     Dates: start: 2015, end: 2015
  3. CALCIUM + VIT D [Concomitant]
     Active Substance: CALCIUM\VITAMIN D
     Indication: MINERAL SUPPLEMENTATION
     Dosage: UNK UNK, UNK
     Route: 048
  4. LEMTRADA [Suspect]
     Active Substance: ALEMTUZUMAB
     Indication: MULTIPLE SCLEROSIS
     Dosage: STYRKE: 12 MG/1.2 ML. INFUNDERES I 100 ML NATRIUMCHLORID INF.V?SKE
     Route: 041
     Dates: start: 20180212, end: 20180215

REACTIONS (6)
  - Blood lactate dehydrogenase increased [Unknown]
  - Haemolytic anaemia [Not Recovered/Not Resolved]
  - Jaundice [Unknown]
  - Haptoglobin decreased [Unknown]
  - Blood bilirubin increased [Unknown]
  - Chromaturia [Unknown]

NARRATIVE: CASE EVENT DATE: 201910
